FAERS Safety Report 9412670 (Version 2)
Quarter: 2013Q3

REPORT INFORMATION
  Report Type: Spontaneous
  Country: ES (occurrence: ES)
  Receive Date: 20130722
  Receipt Date: 20130726
  Transmission Date: 20140515
  Serious: Yes (Hospitalization, Other)
  Sender: FDA-Public Use
  Company Number: ES-PFIZER INC-2013212670

PATIENT
  Age: 85 Year
  Sex: Female

DRUGS (3)
  1. BESITRAN [Suspect]
     Dosage: UNK
     Route: 048
     Dates: start: 20130515
  2. LISINOPRIL [Interacting]
     Dosage: UNK
     Route: 048
     Dates: start: 20130515
  3. DEPRAX (TRAZODONE HYDROCHLORIDE) [Interacting]
     Dosage: UNK
     Route: 048
     Dates: start: 20130514

REACTIONS (2)
  - Hyponatraemia [Recovered/Resolved]
  - Drug interaction [Recovered/Resolved]
